FAERS Safety Report 5399438-8 (Version None)
Quarter: 2007Q3

REPORT INFORMATION
  Report Type: 
  Country: None (occurrence: None)
  Receive Date: 20070727
  Receipt Date: 20070603
  Transmission Date: 20080115
  Serious: Yes (Other)
  Sender: FDA-Public Use
  Company Number: US-PURDUE-USA_2007_0028364

PATIENT
  Sex: Male

DRUGS (1)
  1. OXYCONTIN [Suspect]
     Indication: ARTHRITIS
     Dosage: UNK MG, UNK
     Route: 048
     Dates: start: 20000910, end: 20010711

REACTIONS (3)
  - APPENDICITIS [None]
  - DRUG DEPENDENCE [None]
  - UNEVALUABLE EVENT [None]
